FAERS Safety Report 7242763 (Version 4)
Quarter: 2014Q4

REPORT INFORMATION
  Report Type: Report from Study
  Country: US (occurrence: US)
  Receive Date: 20100112
  Receipt Date: 20141010
  Transmission Date: 20150529
  Serious: Yes (Hospitalization)
  Sender: FDA-Public Use
  Company Number: US-BIOGENIDEC-2010BI000674

PATIENT
  Age: 53 Year
  Sex: Female

DRUGS (1)
  1. AVONEX [Suspect]
     Active Substance: INTERFERON BETA-1A
     Indication: MULTIPLE SCLEROSIS
     Route: 030
     Dates: start: 19960519

REACTIONS (12)
  - Pain [Recovered/Resolved]
  - Soft tissue injury [Recovered/Resolved]
  - Fracture malunion [Recovered/Resolved]
  - Memory impairment [Recovered/Resolved]
  - Arthralgia [Unknown]
  - Femur fracture [Unknown]
  - Impaired healing [Recovered/Resolved]
  - Dysstasia [Recovered/Resolved]
  - Fall [Recovered/Resolved]
  - Ankle fracture [Unknown]
  - Muscle injury [Recovered/Resolved]
  - Lower limb fracture [Recovered/Resolved]

NARRATIVE: CASE EVENT DATE: 20091225
